FAERS Safety Report 9605643 (Version 1)
Quarter: 2013Q4

REPORT INFORMATION
  Report Type: Spontaneous
  Country: JP (occurrence: JP)
  Receive Date: 20131008
  Receipt Date: 20131008
  Transmission Date: 20140711
  Serious: Yes (Hospitalization)
  Sender: FDA-Public Use
  Company Number: JP-PFIZER INC-2013285498

PATIENT
  Age: 82 Year
  Sex: Female

DRUGS (1)
  1. LYRICA [Suspect]
     Indication: PAIN IN EXTREMITY
     Dosage: 25 MG, 2X/DAY, IN THE MORNING AND BEFORE BEDTIME
     Route: 048

REACTIONS (2)
  - Off label use [Unknown]
  - Femoral neck fracture [Unknown]
